FAERS Safety Report 8955482 (Version 2)
Quarter: 2012Q4

REPORT INFORMATION
  Report Type: 
  Country: IN (occurrence: IN)
  Receive Date: 20121210
  Receipt Date: 20121212
  Transmission Date: 20130627
  Serious: Yes (Death, Hospitalization)
  Sender: FDA-Public Use
  Company Number: IN-009507513-1212IND002576

PATIENT
  Age: 34 Year
  Sex: Female

DRUGS (2)
  1. JANUMET [Suspect]
     Dosage: UNK UNK, bid
     Route: 048
  2. JANUMET [Suspect]
     Dosage: 30-35 medicines at a time
     Dates: start: 20121205

REACTIONS (3)
  - Cerebral haemorrhage [Fatal]
  - Intentional overdose [Fatal]
  - Mental disorder [Unknown]
